FAERS Safety Report 23811463 (Version 1)
Quarter: 2024Q2

REPORT INFORMATION
  Report Type: Other
  Country: DE (occurrence: DE)
  Receive Date: 20240503
  Receipt Date: 20240503
  Transmission Date: 20240715
  Serious: Yes (Other)
  Sender: FDA-Public Use
  Company Number: DE-EMBRYOTOX-202308822

PATIENT

DRUGS (3)
  1. ADALIMUMAB [Suspect]
     Active Substance: ADALIMUMAB\ISOPROPYL ALCOHOL
     Indication: Rheumatoid arthritis
     Dosage: 40 MILLIGRAM, Q2W
     Route: 064
     Dates: start: 20230128, end: 20231110
  2. PREDNISOLONE [Suspect]
     Active Substance: PREDNISOLONE
     Indication: Rheumatoid arthritis
     Dosage: 15 MG, QD, 15 [MG/D ]/ PLANNED TIL 38.5, AT LEAST TAKEN TIL GW 37.6, STARTED WITH 15 MG, GRADUALLY R
     Route: 064
     Dates: start: 20230914, end: 20231026
  3. FOLIC ACID [Concomitant]
     Active Substance: FOLIC ACID
     Indication: Prophylaxis of neural tube defect
     Dosage: 5 MILLIGRAM, QD
     Route: 064
     Dates: start: 20230128, end: 20231110

REACTIONS (2)
  - Small for dates baby [Recovering/Resolving]
  - Foetal exposure during pregnancy [Unknown]

NARRATIVE: CASE EVENT DATE: 20231101
